FAERS Safety Report 5623014-2 (Version None)
Quarter: 2008Q1

REPORT INFORMATION
  Report Type: 
  Country: None (occurrence: None)
  Receive Date: 20080212
  Receipt Date: 20080201
  Transmission Date: 20080703
  Serious: Yes (Hospitalization)
  Sender: FDA-Public Use
  Company Number: US-JNJFOC-20080201060

PATIENT
  Sex: Female

DRUGS (3)
  1. INFLIXIMAB [Suspect]
     Indication: COLITIS ULCERATIVE
     Route: 042
  2. FLAGYL [Concomitant]
  3. ACID BLOCKER [Concomitant]

REACTIONS (3)
  - COLITIS ULCERATIVE [None]
  - DEHYDRATION [None]
  - VOMITING [None]
